FAERS Safety Report 4332423-3 (Version None)
Quarter: 2004Q1

REPORT INFORMATION
  Report Type: 
  Country: None (occurrence: None)
  Receive Date: 20040329
  Receipt Date: 20040126
  Transmission Date: 20041129
  Serious: No
  Sender: FDA-Public Use
  Company Number: 04P-163-0248309

PATIENT
  Age: 64 Year
  Sex: Female
  Weight: 58.9676 kg

DRUGS (10)
  1. HUMIRA [Suspect]
     Indication: RHEUMATOID ARTHRITIS
     Dosage: SEE IMAGE
     Route: 058
     Dates: start: 20030801, end: 20030801
  2. HUMIRA [Suspect]
     Indication: RHEUMATOID ARTHRITIS
     Dosage: SEE IMAGE
     Route: 058
     Dates: start: 20031001, end: 20031201
  3. HUMIRA [Suspect]
     Indication: RHEUMATOID ARTHRITIS
     Dosage: SEE IMAGE
     Route: 058
     Dates: start: 20040105, end: 20040111
  4. METHOTREXATE [Concomitant]
  5. FOLIC ACID [Concomitant]
  6. PREDNISONE [Concomitant]
  7. DICYCLOMINE HCL [Concomitant]
  8. CALCIUM AND IRON [Concomitant]
  9. VENLAFAXINE HCL [Concomitant]
  10. ZOLPIDEM TARTRATE [Concomitant]

REACTIONS (3)
  - KIDNEY INFECTION [None]
  - SINUSITIS [None]
  - TOOTH INJURY [None]
